FAERS Safety Report 9213752 (Version 1)
Quarter: 2013Q2

REPORT INFORMATION
  Report Type: Spontaneous
  Country: ES (occurrence: ES)
  Receive Date: 20130405
  Receipt Date: 20130405
  Transmission Date: 20140414
  Serious: Yes (Other)
  Sender: FDA-Public Use
  Company Number: ES-PFIZER INC-2013105074

PATIENT
  Age: 46 Year
  Sex: Female

DRUGS (1)
  1. CARBOPLATIN [Suspect]
     Indication: OVARIAN CANCER
     Dosage: 400 MG, UNK
     Route: 042
     Dates: start: 20130213, end: 20130213

REACTIONS (8)
  - Frequent bowel movements [Recovering/Resolving]
  - Back pain [Recovered/Resolved]
  - Hypotension [Recovered/Resolved]
  - Pruritus [Recovering/Resolving]
  - Muscular weakness [Recovered/Resolved]
  - Vomiting [Recovered/Resolved]
  - Hyperhidrosis [Recovering/Resolving]
  - Nausea [Recovering/Resolving]
